FAERS Safety Report 7242697-7 (Version None)
Quarter: 2011Q1

REPORT INFORMATION
  Report Type: 
  Country: None (occurrence: None)
  Receive Date: 20110125
  Receipt Date: 20110113
  Transmission Date: 20110831
  Serious: Yes (Other)
  Sender: FDA-Public Use
  Company Number: JP-BRISTOL-MYERS SQUIBB COMPANY-14607865

PATIENT
  Age: 27 Year
  Sex: Female
  Weight: 48 kg

DRUGS (4)
  1. AKINETON [Concomitant]
     Dates: start: 19980605, end: 20080807
  2. ABILIFY [Suspect]
     Indication: SCHIZOPHRENIA
     Dosage: STD AS 3MG FRM 28AUG7-21JAN8(147DYS) DOSE INCREASED TO 6MG DAILY ON 22JAN08-ONG, 07AUG08:6MG/DY
     Route: 048
     Dates: start: 20070828
  3. HIBERNA [Concomitant]
     Dates: start: 19980605, end: 20080807
  4. HALOSTEN [Concomitant]
     Dates: start: 19980605, end: 20090115

REACTIONS (4)
  - DRUG EXPOSURE DURING PREGNANCY [None]
  - PREGNANCY [None]
  - PREMATURE LABOUR [None]
  - NORMAL NEWBORN [None]
